FAERS Safety Report 25770161 (Version 1)
Quarter: 2025Q3

REPORT INFORMATION
  Report Type: Report from Study
  Country: US (occurrence: US)
  Receive Date: 20250907
  Receipt Date: 20250907
  Transmission Date: 20251021
  Serious: Yes (Other)
  Sender: ABBVIE
  Company Number: US-ABBVIE-6445432

PATIENT
  Sex: Male

DRUGS (1)
  1. SKYRIZI [Suspect]
     Active Substance: RISANKIZUMAB-RZAA
     Indication: Crohn^s disease
     Route: 058
     Dates: start: 20241101

REACTIONS (4)
  - Intestinal resection [Recovering/Resolving]
  - Gastrointestinal scarring [Recovering/Resolving]
  - Tooth extraction [Unknown]
  - Spleen disorder [Recovering/Resolving]
